FAERS Safety Report 24409319 (Version 2)
Quarter: 2024Q4

REPORT INFORMATION
  Report Type: Report from Study
  Country: JP (occurrence: JP)
  Receive Date: 20241008
  Receipt Date: 20241023
  Transmission Date: 20250115
  Serious: Yes (Other)
  Sender: TEVA
  Company Number: JP-TEVA-VS-3249789

PATIENT
  Age: 30 Year
  Sex: Female

DRUGS (4)
  1. PREDNISOLONE [Suspect]
     Active Substance: PREDNISOLONE
     Indication: Crohn^s disease
     Route: 065
  2. ISONIAZID [Suspect]
     Active Substance: ISONIAZID
     Indication: Latent tuberculosis
     Route: 065
  3. ADALIMUMAB [Concomitant]
     Active Substance: ADALIMUMAB
     Indication: Crohn^s disease
     Route: 065
  4. METHYLPREDNISOLONE [Concomitant]
     Active Substance: METHYLPREDNISOLONE
     Indication: Crohn^s disease
     Dosage: 6-METHYLPREDNISOLONE
     Route: 065

REACTIONS (2)
  - Tuberculosis [Unknown]
  - Drug ineffective [Unknown]
